FAERS Safety Report 18755360 (Version 2)
Quarter: 2021Q1

REPORT INFORMATION
  Report Type: Report from Study
  Country: AU (occurrence: AU)
  Receive Date: 20210119
  Receipt Date: 20210203
  Transmission Date: 20210419
  Serious: No
  Sender: FDA-Public Use
  Company Number: AU-TAKEDA-2021TUS002987

PATIENT
  Sex: Male

DRUGS (1)
  1. BORTEZOMIB. [Suspect]
     Active Substance: BORTEZOMIB
     Indication: LIGHT CHAIN DISEASE
     Dosage: UNK
     Route: 065

REACTIONS (2)
  - Off label use [Unknown]
  - Product use in unapproved indication [Unknown]
